FAERS Safety Report 5215832-X (Version None)
Quarter: 2007Q1

REPORT INFORMATION
  Report Type: 
  Country: None (occurrence: None)
  Receive Date: 20070123
  Receipt Date: 20070112
  Transmission Date: 20070707
  Serious: Yes (Other)
  Sender: FDA-Public Use
  Company Number: US-ROCHE-478636

PATIENT
  Age: 51 Year
  Sex: Female
  Weight: 83.9 kg

DRUGS (3)
  1. PEGASYS [Suspect]
     Indication: HEPATITIS C
     Route: 065
     Dates: start: 20061119
  2. COPEGUS [Suspect]
     Indication: HEPATITIS C
     Route: 048
     Dates: start: 20061119
  3. METHADONE [Concomitant]
     Indication: PAIN

REACTIONS (2)
  - CHOLECYSTITIS [None]
  - NAUSEA [None]
